FAERS Safety Report 9153743 (Version 3)
Quarter: 2013Q2

REPORT INFORMATION
  Report Type: Spontaneous
  Country: GB (occurrence: GB)
  Receive Date: 20130311
  Receipt Date: 20130517
  Transmission Date: 20140414
  Serious: Yes (Hospitalization, Other)
  Sender: FDA-Public Use
  Company Number: PHFR2013GB001561

PATIENT
  Age: 90 Year
  Sex: Male

DRUGS (5)
  1. CLOZARIL [Suspect]
     Indication: SCHIZOPHRENIA
     Dosage: 12.5 MG
     Route: 048
     Dates: start: 20130227
  2. SINEMET [Concomitant]
     Dosage: 1.5 UKN
     Route: 048
  3. FUROSEMIDE [Concomitant]
     Dosage: UNK
  4. LAXATIVE [Concomitant]
     Dosage: UNK
  5. LEVACET [Concomitant]
     Dosage: UNK

REACTIONS (4)
  - Psychotic disorder [Unknown]
  - Fall [Unknown]
  - Aggression [Recovered/Resolved]
  - White blood cell count decreased [Recovered/Resolved]
